FAERS Safety Report 7516761-9 (Version None)
Quarter: 2011Q2

REPORT INFORMATION
  Report Type: 
  Country: None (occurrence: None)
  Receive Date: 20110523
  Receipt Date: 20110510
  Transmission Date: 20111010
  Serious: Yes (Other)
  Sender: FDA-Public Use
  Company Number: CC2011-006

PATIENT
  Age: 77 Year
  Sex: Female
  Weight: 66 kg

DRUGS (4)
  1. DAPSONE [Suspect]
     Dosage: 100MG, DAILY, ORAL CTD
     Route: 048
     Dates: start: 20101222, end: 20110102
  2. RITUXIMAB (SUSPECT PRODUCT) [Suspect]
     Dosage: 375 MG/M2, Q 28 DAYS, IV
     Route: 042
     Dates: start: 20101222, end: 20110102
  3. TREANDA [Suspect]
     Dosage: 90 MG/M2, Q 28 DAYS, IV, NOW OFF
     Route: 042
     Dates: start: 20101222
  4. ACYCLOVIR [Suspect]
     Dosage: 400MG, TWICE DAILY, ORAL
     Route: 048
     Dates: start: 20101222, end: 20110102

REACTIONS (5)
  - RASH MACULO-PAPULAR [None]
  - SKIN EXFOLIATION [None]
  - RASH ERYTHEMATOUS [None]
  - RASH PRURITIC [None]
  - ACTIVITIES OF DAILY LIVING IMPAIRED [None]
